FAERS Safety Report 18061821 (Version 1)
Quarter: 2020Q3

REPORT INFORMATION
  Report Type: Spontaneous
  Country: US (occurrence: US)
  Receive Date: 20200723
  Receipt Date: 20200723
  Transmission Date: 20201103
  Serious: Yes (Hospitalization, Other)
  Sender: FDA-Public Use
  Company Number: US-GILEAD-2020-0484958

PATIENT
  Age: 23 Year
  Sex: Male
  Weight: 72.56 kg

DRUGS (60)
  1. TRUVADA [Suspect]
     Active Substance: EMTRICITABINE\TENOFOVIR DISOPROXIL FUMARATE
     Dosage: UNK
     Route: 048
     Dates: start: 20110615, end: 20131009
  2. VIREAD [Suspect]
     Active Substance: TENOFOVIR DISOPROXIL FUMARATE
     Indication: HIV INFECTION
     Dosage: UNK
     Route: 048
     Dates: start: 20130923, end: 20131009
  3. ALBUTEROL [SALBUTAMOL] [Concomitant]
     Active Substance: ALBUTEROL
  4. AZITHROMYCIN ANHYDROUS. [Concomitant]
     Active Substance: AZITHROMYCIN ANHYDROUS
  5. DEXTROSE. [Concomitant]
     Active Substance: DEXTROSE
  6. ATIVAN [Concomitant]
     Active Substance: LORAZEPAM
  7. CLINDAMYCIN. [Concomitant]
     Active Substance: CLINDAMYCIN
  8. COLACE [Concomitant]
     Active Substance: DOCUSATE SODIUM
  9. INTELENCE [Concomitant]
     Active Substance: ETRAVIRINE
  10. SUBLIMAZE [Concomitant]
     Active Substance: FENTANYL CITRATE
  11. MOTRIN [Concomitant]
     Active Substance: IBUPROFEN
  12. ZYVOX [Concomitant]
     Active Substance: LINEZOLID
  13. NORVIR [Concomitant]
     Active Substance: RITONAVIR
  14. TRUVADA [Suspect]
     Active Substance: EMTRICITABINE\TENOFOVIR DISOPROXIL FUMARATE
     Indication: HIV INFECTION
     Dosage: UNK
     Route: 048
     Dates: start: 20100324, end: 20130308
  15. COMBIVIR [Concomitant]
     Active Substance: LAMIVUDINE\ZIDOVUDINE
  16. VIRAMUNE [Concomitant]
     Active Substance: NEVIRAPINE
  17. ACYCLOVIR [ACICLOVIR] [Concomitant]
     Active Substance: ACYCLOVIR
  18. PREZISTA [Concomitant]
     Active Substance: DARUNAVIR ETHANOLATE
  19. FOLVITE [FOLIC ACID] [Concomitant]
  20. INSULIN [Concomitant]
     Active Substance: INSULIN NOS
  21. VALCYTE [Concomitant]
     Active Substance: VALGANCICLOVIR HYDROCHLORIDE
  22. BENADRYL [Concomitant]
     Active Substance: DIPHENHYDRAMINE HYDROCHLORIDE
  23. LASIX [Concomitant]
     Active Substance: FUROSEMIDE
  24. HALDOL [Concomitant]
     Active Substance: HALOPERIDOL
  25. ZOFRAN [Concomitant]
     Active Substance: ONDANSETRON HYDROCHLORIDE
  26. PAXIL [Concomitant]
     Active Substance: PAROXETINE HYDROCHLORIDE
  27. SODIUM CHLORIDE. [Concomitant]
     Active Substance: SODIUM CHLORIDE
  28. ZOSYN [Concomitant]
     Active Substance: PIPERACILLIN SODIUM\TAZOBACTAM SODIUM
  29. CEFEPIME [Concomitant]
     Active Substance: CEFEPIME HYDROCHLORIDE
  30. CALCIUM [Concomitant]
     Active Substance: CALCIUM
  31. ADOXA [DOXYCYCLINE] [Concomitant]
  32. OXYCODONE [Concomitant]
     Active Substance: OXYCODONE
  33. SENNA?S [DOCUSATE SODIUM;SENNA ALEXANDRINA] [Concomitant]
  34. PROTOPIC [Concomitant]
     Active Substance: TACROLIMUS
  35. NEBCIN [Concomitant]
     Active Substance: TOBRAMYCIN SULFATE
  36. SUSTIVA [Concomitant]
     Active Substance: EFAVIRENZ
  37. AUGMENTIN [Concomitant]
     Active Substance: AMOXICILLIN\CLAVULANATE POTASSIUM
  38. UNASYN [AMPICILLIN SODIUM;SULBACTAM SODIUM] [Concomitant]
  39. MARINOL [Concomitant]
     Active Substance: DRONABINOL
  40. CYTOVENE [GANCICLOVIR] [Concomitant]
  41. BACTRIM [Concomitant]
     Active Substance: SULFAMETHOXAZOLE\TRIMETHOPRIM
  42. VALTREX [Concomitant]
     Active Substance: VALACYCLOVIR HYDROCHLORIDE
  43. VANCOCIN [Concomitant]
     Active Substance: VANCOMYCIN HYDROCHLORIDE
  44. VITAMIN D2 [Concomitant]
     Active Substance: ERGOCALCIFEROL
  45. ZYLOPRIM [Concomitant]
     Active Substance: ALLOPURINOL
  46. CLONIDINE. [Concomitant]
     Active Substance: CLONIDINE
  47. FERROUS SULFATE. [Concomitant]
     Active Substance: FERROUS SULFATE
  48. DIFLUCAN [Concomitant]
     Active Substance: FLUCONAZOLE
  49. IPRATROPIUM [Concomitant]
     Active Substance: IPRATROPIUM
  50. LEVAQUIN [Concomitant]
     Active Substance: LEVOFLOXACIN
  51. PANTOPRAZOLE [Concomitant]
     Active Substance: PANTOPRAZOLE
  52. K?DUR [Concomitant]
     Active Substance: POTASSIUM CHLORIDE
  53. PHENERGAN [Concomitant]
     Active Substance: PROMETHAZINE HYDROCHLORIDE
  54. KALETRA [Concomitant]
     Active Substance: LOPINAVIR\RITONAVIR
  55. NORVASC [Concomitant]
     Active Substance: AMLODIPINE BESYLATE
  56. ROCEPHIN [Concomitant]
     Active Substance: CEFTRIAXONE SODIUM
  57. PROCRIT [Concomitant]
     Active Substance: ERYTHROPOIETIN
  58. FERROUS GLUCONATE [Concomitant]
     Active Substance: FERROUS GLUCONATE
  59. HYDROCORTISONE. [Concomitant]
     Active Substance: HYDROCORTISONE
  60. MYCOSTATIN [Concomitant]
     Active Substance: NYSTATIN

REACTIONS (5)
  - Renal failure [Unknown]
  - Emotional distress [Unknown]
  - Haematoma [Unknown]
  - Pain [Unknown]
  - Chronic kidney disease [Unknown]

NARRATIVE: CASE EVENT DATE: 20120923
